FAERS Safety Report 4584202-X (Version None)
Quarter: 2005Q1

REPORT INFORMATION
  Report Type: 
  Country: None (occurrence: None)
  Receive Date: 20050216
  Receipt Date: 20050111
  Transmission Date: 20050727
  Serious: Yes (Hospitalization, Disabling)
  Sender: FDA-Public Use
  Company Number: JP-GLAXOSMITHKLINE-B0364422A

PATIENT
  Age: 76 Year
  Sex: Female
  Weight: 43 kg

DRUGS (2)
  1. VALTREX [Suspect]
     Indication: HERPES ZOSTER
     Dosage: 1000MG THREE TIMES PER DAY
     Route: 048
     Dates: start: 20041228, end: 20041230
  2. ACYCLOVIR [Concomitant]
     Indication: HERPES ZOSTER
     Dosage: 500MG PER DAY
     Route: 042
     Dates: start: 20041228, end: 20041228

REACTIONS (4)
  - BLOOD CREATININE INCREASED [None]
  - BLOOD UREA INCREASED [None]
  - RENAL FAILURE ACUTE [None]
  - URINE OUTPUT DECREASED [None]
